FAERS Safety Report 25356899 (Version 1)
Quarter: 2025Q2

REPORT INFORMATION
  Report Type: Spontaneous
  Country: DE (occurrence: DE)
  Receive Date: 20250526
  Receipt Date: 20250526
  Transmission Date: 20250717
  Serious: Yes (Other)
  Sender: VALIDUS
  Company Number: DE-VALIDUS PHARMACEUTICALS LLC-VLDS-RB-2025-00036

PATIENT
  Age: 57 Year
  Sex: Male

DRUGS (1)
  1. CARBAMAZEPINE [Suspect]
     Active Substance: CARBAMAZEPINE
     Indication: Trigeminal neuralgia
     Route: 065
     Dates: start: 202403

REACTIONS (1)
  - Adverse drug reaction [Unknown]
